FAERS Safety Report 4829854-1 (Version None)
Quarter: 2005Q4

REPORT INFORMATION
  Report Type: 
  Country: None (occurrence: None)
  Receive Date: 20051115
  Receipt Date: 20051102
  Transmission Date: 20060501
  Serious: Yes (Hospitalization)
  Sender: FDA-Public Use
  Company Number: 2005BI020141

PATIENT
  Age: 44 Year
  Sex: Female

DRUGS (1)
  1. AVONEX [Suspect]
     Indication: MULTIPLE SCLEROSIS
     Dosage: 30 UG; QW; IM
     Route: 030
     Dates: start: 20030916

REACTIONS (7)
  - ABDOMINAL DISTENSION [None]
  - HERNIA [None]
  - INTESTINAL PERFORATION [None]
  - MENSTRUAL DISORDER [None]
  - NAUSEA [None]
  - SWELLING [None]
  - VOMITING [None]
